FAERS Safety Report 16531792 (Version 1)
Quarter: 2019Q3

REPORT INFORMATION
  Report Type: Spontaneous
  Country: IT (occurrence: IT)
  Receive Date: 20190705
  Receipt Date: 20190705
  Transmission Date: 20191004
  Serious: Yes (Hospitalization)
  Sender: FDA-Public Use
  Company Number: IT-TEVA-2019-IT-1073249

PATIENT
  Age: 83 Year
  Sex: Male
  Weight: 72 kg

DRUGS (14)
  1. PEMETREXED DISODIUM [Suspect]
     Active Substance: PEMETREXED DISODIUM
     Indication: LUNG ADENOCARCINOMA
     Route: 041
     Dates: start: 20190419, end: 20190419
  2. EUTIROX [Concomitant]
     Active Substance: LEVOTHYROXINE SODIUM
     Indication: HYPOTHYROIDISM
  3. PALONOSETRON FRESENIUS KABI 250 MICROGRAMMI SOLUZIONE INETTABILE [Concomitant]
     Indication: PROPHYLAXIS OF NAUSEA AND VOMITING
     Route: 042
     Dates: start: 20190419, end: 20190419
  4. GLUTATHIONE [Concomitant]
     Active Substance: GLUTATHIONE
     Indication: NEUROPATHY PERIPHERAL
     Route: 042
     Dates: start: 20190419, end: 20190419
  5. CARBOPLATIN. [Suspect]
     Active Substance: CARBOPLATIN
     Indication: LUNG ADENOCARCINOMA
     Route: 041
     Dates: start: 20190419, end: 20190419
  6. LYRICA [Concomitant]
     Active Substance: PREGABALIN
     Route: 048
  7. MESAVANCOL [Concomitant]
     Active Substance: MESALAMINE
     Indication: COLITIS ULCERATIVE
     Route: 048
  8. IVEMEND [Concomitant]
     Active Substance: FOSAPREPITANT DIMEGLUMINE
     Indication: PROPHYLAXIS OF NAUSEA AND VOMITING
     Route: 042
  9. SILODYX [Concomitant]
     Active Substance: SILODOSIN
     Indication: BENIGN PROSTATIC HYPERPLASIA
     Route: 048
  10. TRIMETON [Concomitant]
     Active Substance: CHLORPHENIRAMINE MALEATE
     Indication: ANTIALLERGIC THERAPY
     Dates: start: 20190419, end: 20190419
  11. ISOPTIN [Concomitant]
     Active Substance: VERAPAMIL HYDROCHLORIDE
     Indication: HYPERTENSION
     Route: 048
  12. COAPROVEL 300 MG/12.5 MG FILM-COATED TABLETS [Concomitant]
     Indication: HYPERTENSION
     Route: 048
  13. OMEPRAZOLE. [Concomitant]
     Active Substance: OMEPRAZOLE
     Indication: PEPTIC ULCER
     Route: 041
     Dates: start: 20190419, end: 20190419
  14. MEGACORT [Concomitant]
     Indication: STEROID THERAPY
     Route: 042
     Dates: start: 20190419, end: 20190419

REACTIONS (1)
  - Febrile neutropenia [Recovered/Resolved]

NARRATIVE: CASE EVENT DATE: 20190425
